FAERS Safety Report 8391145-2 (Version None)
Quarter: 2012Q2

REPORT INFORMATION
  Report Type: 
  Country: None (occurrence: None)
  Receive Date: 20120529
  Receipt Date: 20120515
  Transmission Date: 20120825
  Serious: No
  Sender: FDA-Public Use
  Company Number: US-ELI_LILLY_AND_COMPANY-US201203002646

PATIENT
  Sex: Female

DRUGS (3)
  1. EFFEXOR XR [Concomitant]
     Dosage: 600 MG, UNK
  2. REMERON [Concomitant]
     Dosage: 30 MG, UNK
  3. ZYPREXA [Suspect]
     Dosage: 40 MG, UNK
     Route: 065

REACTIONS (2)
  - MALABSORPTION [None]
  - OVERDOSE [None]
